FAERS Safety Report 18145337 (Version 5)
Quarter: 2020Q4

REPORT INFORMATION
  Report Type: Report from Study
  Country: None (occurrence: US)
  Receive Date: 20200813
  Receipt Date: 20201127
  Transmission Date: 20210113
  Serious: Yes (Hospitalization)
  Sender: FDA-Public Use
  Company Number: US-BIOVITRUM-2020US4255

PATIENT
  Sex: Female

DRUGS (3)
  1. KINERET [Suspect]
     Active Substance: ANAKINRA
     Route: 058
  2. KINERET [Suspect]
     Active Substance: ANAKINRA
     Indication: PRODUCT USED FOR UNKNOWN INDICATION
     Route: 058
  3. KINERET [Suspect]
     Active Substance: ANAKINRA
     Route: 058

REACTIONS (8)
  - Pyrexia [Unknown]
  - Injection site mass [Unknown]
  - Hypotension [Unknown]
  - Rash pruritic [Unknown]
  - Injection site induration [Unknown]
  - Weight decreased [Unknown]
  - Pain [Unknown]
  - Rash erythematous [Unknown]
